FAERS Safety Report 4485051-3 (Version None)
Quarter: 2004Q4

REPORT INFORMATION
  Report Type: 
  Country: None (occurrence: None)
  Receive Date: 20041022
  Receipt Date: 20041022
  Transmission Date: 20050328
  Serious: Yes (Hospitalization)
  Sender: FDA-Public Use
  Company Number: None

PATIENT
  Sex: Female
  Weight: 28.3 kg

DRUGS (2)
  1. METHOTREXATE [Suspect]
     Indication: LEUKAEMIA
     Dosage: 4645 MG INTRAVENOU
     Route: 042
     Dates: start: 20040816, end: 20040817
  2. METHOTREXATE [Suspect]
     Indication: LEUKAEMIA
     Dosage: 12 MG INTRATHECA
     Route: 037
     Dates: start: 20040816, end: 20040816

REACTIONS (2)
  - HEADACHE [None]
  - NUCLEAR MAGNETIC RESONANCE IMAGING ABNORMAL [None]
